FAERS Safety Report 9145581 (Version 1)
Quarter: 2013Q1

REPORT INFORMATION
  Report Type: Spontaneous
  Country: US (occurrence: US)
  Receive Date: 20130307
  Receipt Date: 20130307
  Transmission Date: 20140127
  Serious: Yes (Other)
  Sender: FDA-Public Use
  Company Number: US-PFIZER INC-2013075070

PATIENT
  Age: 65 Year
  Sex: Female
  Weight: 109 kg

DRUGS (8)
  1. EFFEXOR [Suspect]
     Dosage: 300 MG, 1X/DAY
     Route: 048
  2. EFFEXOR [Suspect]
     Dosage: 150 MG, 1X/DAY
     Route: 048
     Dates: start: 20130218
  3. EFFEXOR [Suspect]
     Dosage: 300 MG, 1X/DAY
     Route: 048
     Dates: start: 20130222, end: 20130225
  4. LORAZEPAM [Concomitant]
     Indication: DEPRESSION
     Dosage: 5 MG, 1X/DAY
  5. LORAZEPAM [Concomitant]
     Indication: ANXIETY
  6. TRAZODONE [Concomitant]
     Indication: DEPRESSION
     Dosage: 350 MG, 1X/DAY
  7. TRAZODONE [Concomitant]
     Indication: SLEEP DISORDER
  8. METHYLPHENIDATE [Concomitant]
     Indication: ATTENTION DEFICIT/HYPERACTIVITY DISORDER
     Dosage: 10 MG, 2X/DAY

REACTIONS (2)
  - Suicidal ideation [Recovered/Resolved]
  - Rash [Recovering/Resolving]
